FAERS Safety Report 8198550-8 (Version None)
Quarter: 2012Q1

REPORT INFORMATION
  Report Type: 
  Country: None (occurrence: None)
  Receive Date: 20120309
  Receipt Date: 20120305
  Transmission Date: 20120608
  Serious: Yes (Life-Threatening, Hospitalization)
  Sender: FDA-Public Use
  Company Number: DE-JNJFOC-20111207230

PATIENT
  Sex: Female

DRUGS (5)
  1. DOXORUBICIN HCL [Suspect]
     Indication: OVARIAN CANCER
     Route: 042
     Dates: start: 20110701, end: 20110701
  2. DOXORUBICIN HCL [Suspect]
     Route: 042
     Dates: start: 20110603, end: 20110603
  3. DOXORUBICIN HCL [Suspect]
     Route: 042
     Dates: start: 20111123
  4. DOXORUBICIN HCL [Suspect]
     Route: 042
     Dates: start: 20110801, end: 20110801
  5. DOXORUBICIN HCL [Suspect]
     Route: 042
     Dates: start: 20110829, end: 20110829

REACTIONS (3)
  - SEPSIS [None]
  - OVARIAN CANCER [None]
  - LUNG INFECTION PSEUDOMONAL [None]
